FAERS Safety Report 14678773 (Version 4)
Quarter: 2022Q3

REPORT INFORMATION
  Report Type: Spontaneous
  Country: DE (occurrence: DE)
  Receive Date: 20180326
  Receipt Date: 20220705
  Transmission Date: 20221027
  Serious: Yes (Hospitalization, Other)
  Sender: FDA-Public Use
  Company Number: DE-MLMSERVICE-20171113-0961718-1

PATIENT
  Age: 56 Year
  Sex: Male

DRUGS (7)
  1. TACROLIMUS [Interacting]
     Active Substance: TACROLIMUS
     Indication: Immunosuppressant drug therapy
  2. RITONAVIR [Interacting]
     Active Substance: RITONAVIR
     Indication: Hepatitis C
  3. PARITAPREVIR [Interacting]
     Active Substance: PARITAPREVIR
     Indication: Hepatitis C
  4. OMBITASVIR [Interacting]
     Active Substance: OMBITASVIR
     Indication: Hepatitis C
  5. DASABUVIR [Interacting]
     Active Substance: DASABUVIR
     Indication: Hepatitis C
  6. PREDNISOLONE [Concomitant]
     Active Substance: PREDNISOLONE
     Indication: Immunosuppressant drug therapy
     Dosage: LOW DOSE
  7. MYCOPHENOLIC ACID [Concomitant]
     Active Substance: MYCOPHENOLIC ACID
     Indication: Immunosuppressant drug therapy

REACTIONS (9)
  - Acute kidney injury [Recovered/Resolved]
  - Off label use [Unknown]
  - Drug interaction [Unknown]
  - Toxicity to various agents [Unknown]
  - Erosive duodenitis [Recovering/Resolving]
  - Pneumonia [Recovering/Resolving]
  - Drug level increased [Recovered/Resolved]
  - Gastric ulcer [Recovering/Resolving]
  - Gastrooesophageal reflux disease [Recovering/Resolving]
